FAERS Safety Report 24864506 (Version 1)
Quarter: 2025Q1

REPORT INFORMATION
  Report Type: Spontaneous
  Country: US (occurrence: US)
  Receive Date: 20250120
  Receipt Date: 20250120
  Transmission Date: 20250409
  Serious: Yes (Hospitalization)
  Sender: STRIDES
  Company Number: US-STRIDES ARCOLAB LIMITED-2024SP003419

PATIENT
  Age: 72 Year
  Sex: Male

DRUGS (12)
  1. METHOTREXATE [Suspect]
     Active Substance: METHOTREXATE
     Indication: Post transplant lymphoproliferative disorder
     Route: 065
  2. METHOTREXATE [Suspect]
     Active Substance: METHOTREXATE
     Indication: Diffuse large B-cell lymphoma
  3. METHOTREXATE [Suspect]
     Active Substance: METHOTREXATE
     Indication: Metastases to central nervous system
  4. METHOTREXATE [Suspect]
     Active Substance: METHOTREXATE
     Indication: Metastases to meninges
  5. RITUXIMAB [Concomitant]
     Active Substance: RITUXIMAB
     Indication: Post transplant lymphoproliferative disorder
     Route: 065
  6. RITUXIMAB [Concomitant]
     Active Substance: RITUXIMAB
     Indication: Diffuse large B-cell lymphoma
  7. RITUXIMAB [Concomitant]
     Active Substance: RITUXIMAB
     Indication: Metastases to central nervous system
  8. RITUXIMAB [Concomitant]
     Active Substance: RITUXIMAB
     Indication: Metastases to meninges
  9. PROCARBAZINE [Concomitant]
     Active Substance: PROCARBAZINE
     Indication: Post transplant lymphoproliferative disorder
     Route: 065
  10. PROCARBAZINE [Concomitant]
     Active Substance: PROCARBAZINE
     Indication: Diffuse large B-cell lymphoma
  11. PROCARBAZINE [Concomitant]
     Active Substance: PROCARBAZINE
     Indication: Metastases to central nervous system
  12. PROCARBAZINE [Concomitant]
     Active Substance: PROCARBAZINE
     Indication: Metastases to meninges

REACTIONS (1)
  - Hepatotoxicity [Recovered/Resolved]
